FAERS Safety Report 5604237-5 (Version None)
Quarter: 2008Q1

REPORT INFORMATION
  Report Type: 
  Country: None (occurrence: None)
  Receive Date: 20080128
  Receipt Date: 20080121
  Transmission Date: 20080703
  Serious: Yes (Hospitalization, Other)
  Sender: FDA-Public Use
  Company Number: FR-BRISTOL-MYERS SQUIBB COMPANY-14011969

PATIENT
  Age: 30 Year
  Sex: Male
  Weight: 70 kg

DRUGS (3)
  1. REYATAZ [Suspect]
     Indication: HIV INFECTION
     Dates: start: 20071206
  2. NORVIR [Suspect]
     Indication: HIV INFECTION
     Dates: start: 20071206
  3. TRUVADA [Suspect]
     Indication: HIV INFECTION
     Dates: start: 20071206

REACTIONS (2)
  - ANGIOEDEMA [None]
  - DRUG HYPERSENSITIVITY [None]
